FAERS Safety Report 14988086 (Version 3)
Quarter: 2018Q4

REPORT INFORMATION
  Report Type: Spontaneous
  Country: US (occurrence: US)
  Receive Date: 20180608
  Receipt Date: 20181016
  Transmission Date: 20190204
  Serious: No
  Sender: FDA-Public Use
  Company Number: US-PFIZER INC-2018026332

PATIENT
  Age: 13 Year
  Sex: Male
  Weight: 61.22 kg

DRUGS (9)
  1. GENOTROPIN [Suspect]
     Active Substance: SOMATROPIN
     Indication: BLOOD GROWTH HORMONE ABNORMAL
     Dosage: 2.4 MG ONE DAY AND THEN 2.6 MG THE NEXT DAY, ALTERNATE DOSING INJECTION
     Dates: start: 20180114
  2. GENOTROPIN [Suspect]
     Active Substance: SOMATROPIN
     Indication: BODY HEIGHT BELOW NORMAL
     Dosage: 2.4 MG, UNK
     Dates: start: 201801
  3. GENOTROPIN [Suspect]
     Active Substance: SOMATROPIN
     Dosage: UNK
  4. GENOTROPIN [Suspect]
     Active Substance: SOMATROPIN
     Dosage: 1X/DAY [2.41MG ONE DAY THEN 2.61MG THE NEXT, ALTERNATING NIGHTLY DOSAGES GIVEN AS INJEC]
  5. GENOTROPIN [Suspect]
     Active Substance: SOMATROPIN
     Dosage: 2.4 MG, ALTERNATE DAY; (INJECT 2.4 MG ALTERNATING WITH 2.6 MG UNDER SKIN)
     Dates: start: 201801
  6. GENOTROPIN [Suspect]
     Active Substance: SOMATROPIN
     Indication: GROWTH HORMONE DEFICIENCY
     Dosage: 2.6 MG, UNK
     Dates: start: 201801
  7. GENOTROPIN [Suspect]
     Active Substance: SOMATROPIN
     Dosage: UNK
  8. GENOTROPIN [Suspect]
     Active Substance: SOMATROPIN
     Dosage: 2.6 MG, ALTERNATE DAY; (INJECT 2.4 MG ALTERNATING WITH 2.6 MG UNDER SKIN)
     Dates: start: 201801
  9. GENOTROPIN [Suspect]
     Active Substance: SOMATROPIN
     Dosage: 2.5 MG, UNK
     Dates: start: 201711

REACTIONS (7)
  - Intentional product misuse [Unknown]
  - Underdose [Unknown]
  - Weight decreased [Unknown]
  - Product prescribing error [Unknown]
  - Rash [Unknown]
  - Product dose omission [Not Recovered/Not Resolved]
  - Device issue [Not Recovered/Not Resolved]

NARRATIVE: CASE EVENT DATE: 201711
